FAERS Safety Report 8853190 (Version 1)
Quarter: 2012Q4

REPORT INFORMATION
  Report Type: 
  Country: GB (occurrence: GB)
  Receive Date: 20121022
  Receipt Date: 20121022
  Transmission Date: 20130627
  Serious: Yes (Hospitalization)
  Sender: FDA-Public Use
  Company Number: GB-ROCHE-760010

PATIENT
  Age: 66 None
  Sex: Female

DRUGS (24)
  1. TOCILIZUMAB [Suspect]
     Indication: SERONEGATIVE ARTHRITIS
     Route: 042
  2. RITUXIMAB [Suspect]
     Indication: RHEUMATOID ARTHRITIS
     Dosage: WAS GIVEN A TOTAL OF 4 COURSES
     Route: 065
     Dates: start: 20071119, end: 20100603
  3. RADIOIODINE [Concomitant]
     Dosage: indication Graves ophthalmopathy
     Route: 065
  4. LEFLUNOMIDE [Concomitant]
     Route: 065
  5. LEFLUNOMIDE [Concomitant]
     Route: 065
  6. BISOPROLOL [Concomitant]
     Indication: MYOCARDIAL ISCHAEMIA
     Dosage: REPORTED AS BISOPRLOL, ALSO FOR HYPERTENSION
     Route: 048
  7. CODEINE [Concomitant]
  8. GTN SPRAY [Concomitant]
     Indication: CHEST PAIN
     Route: 060
  9. CLOPIDOGREL [Concomitant]
     Dosage: REPORTED AS CLOPIDGREL
     Route: 065
  10. OMEPRAZOLE [Concomitant]
     Indication: DYSPEPSIA
     Route: 048
  11. THYROXINE [Concomitant]
     Indication: BASEDOW^S DISEASE
     Route: 048
  12. METHOTREXATE [Concomitant]
  13. CO-CODAMOL [Concomitant]
     Indication: PAIN
     Dosage: 30/500
     Route: 048
  14. NAPROXEN [Concomitant]
  15. PROPRANOLOL [Concomitant]
  16. FOLIC ACID [Concomitant]
  17. PREDNISOLONE [Concomitant]
  18. METHYLPREDNISOLONE [Concomitant]
  19. RADIOACTIVE IODINE [Concomitant]
  20. FERROUS FUMARATE [Concomitant]
  21. SIMVASTATIN [Concomitant]
  22. CEFALEXIN [Concomitant]
  23. ASPIRIN [Concomitant]
  24. PREDNISOLON [Concomitant]
     Dosage: small dose
     Route: 048

REACTIONS (6)
  - Posterior reversible encephalopathy syndrome [Recovering/Resolving]
  - Sepsis [Recovering/Resolving]
  - Staphylococcal bacteraemia [Recovering/Resolving]
  - Drug resistance [Unknown]
  - Neck pain [Not Recovered/Not Resolved]
  - Rash [Not Recovered/Not Resolved]
